FAERS Safety Report 5527319-5 (Version None)
Quarter: 2007Q4

REPORT INFORMATION
  Report Type: 
  Country: None (occurrence: None)
  Receive Date: 20071128
  Receipt Date: 20071115
  Transmission Date: 20080405
  Serious: Yes (Other)
  Sender: FDA-Public Use
  Company Number: B0495291A

PATIENT
  Age: 7 Year
  Sex: Female

DRUGS (1)
  1. VICCLOX [Suspect]
     Indication: HERPES ZOSTER
     Route: 042

REACTIONS (1)
  - VISUAL DISTURBANCE [None]
